FAERS Safety Report 18189399 (Version 6)
Quarter: 2020Q4

REPORT INFORMATION
  Report Type: Spontaneous
  Country: US (occurrence: US)
  Receive Date: 20200824
  Receipt Date: 20201103
  Transmission Date: 20210113
  Serious: Yes (Hospitalization)
  Sender: FDA-Public Use
  Company Number: US-GLAXOSMITHKLINE-US2020AMR166534

PATIENT
  Sex: Female

DRUGS (5)
  1. ZEJULA [Suspect]
     Active Substance: NIRAPARIB
     Dosage: 200 MG, QD
     Dates: start: 20200729
  2. ZEJULA [Suspect]
     Active Substance: NIRAPARIB
     Dosage: 100 MG, QD
  3. ZEJULA [Suspect]
     Active Substance: NIRAPARIB
     Dosage: 300 MG, QD
     Route: 065
     Dates: start: 20200728
  4. ZEJULA [Suspect]
     Active Substance: NIRAPARIB
     Dosage: 2 DF (PILLS), QD
  5. ZEJULA [Suspect]
     Active Substance: NIRAPARIB
     Indication: OVARIAN CANCER
     Dosage: 100 MG
     Route: 065
     Dates: start: 20200308

REACTIONS (9)
  - Arthritis [Unknown]
  - Nausea [Unknown]
  - Hospitalisation [Unknown]
  - Flatulence [Unknown]
  - Arthralgia [Unknown]
  - Vomiting [Unknown]
  - Adverse drug reaction [Unknown]
  - Platelet count decreased [Recovering/Resolving]
  - Dyspepsia [Unknown]
